FAERS Safety Report 13691852 (Version 4)
Quarter: 2019Q2

REPORT INFORMATION
  Report Type: Report from Study
  Country: US (occurrence: US)
  Receive Date: 20170626
  Receipt Date: 20190613
  Transmission Date: 20190711
  Serious: Yes (Other)
  Sender: FDA-Public Use
  Company Number: US-AMGEN-USASP2017094658

PATIENT
  Age: 71 Year
  Sex: Female

DRUGS (10)
  1. TYLENOL [Suspect]
     Active Substance: ACETAMINOPHEN
     Indication: PRODUCT USED FOR UNKNOWN INDICATION
     Dosage: UNK
     Route: 065
     Dates: start: 2017
  2. CALCIUM [Concomitant]
     Active Substance: CALCIUM
     Dosage: 2 DF, UNK
  3. VITAMIN B12 [Concomitant]
     Active Substance: CYANOCOBALAMIN
  4. ENBREL [Suspect]
     Active Substance: ETANERCEPT
     Indication: RHEUMATOID ARTHRITIS
     Dosage: UNK UNK, QWK
     Route: 065
     Dates: start: 201703
  5. MAGNESIUM [Concomitant]
     Active Substance: MAGNESIUM
  6. PLAQUENIL [Concomitant]
     Active Substance: HYDROXYCHLOROQUINE SULFATE
  7. METHOTREXATE. [Concomitant]
     Active Substance: METHOTREXATE
  8. MTX [Concomitant]
     Active Substance: METHOTREXATE SODIUM
  9. PREDNISONE. [Suspect]
     Active Substance: PREDNISONE
     Indication: PRODUCT USED FOR UNKNOWN INDICATION
     Dosage: UNK
     Route: 065
     Dates: start: 2017
  10. FOLIC ACID. [Concomitant]
     Active Substance: FOLIC ACID

REACTIONS (26)
  - Constipation [Recovered/Resolved]
  - Tremor [Unknown]
  - Abdominal distension [Recovering/Resolving]
  - Spinal cord injury [Not Recovered/Not Resolved]
  - Cervical vertebral fracture [Not Recovered/Not Resolved]
  - Feeling abnormal [Unknown]
  - Pyrexia [Unknown]
  - Back pain [Unknown]
  - Hyperhidrosis [Unknown]
  - Nausea [Unknown]
  - Asthma [Not Recovered/Not Resolved]
  - Feeding disorder [Unknown]
  - Abdominal pain [Recovering/Resolving]
  - Weight decreased [Unknown]
  - Pain [Unknown]
  - Essential hypertension [Not Recovered/Not Resolved]
  - Osteoarthritis [Not Recovered/Not Resolved]
  - Carpal tunnel syndrome [Not Recovered/Not Resolved]
  - Decreased appetite [Unknown]
  - Vomiting [Recovering/Resolving]
  - Insomnia [Unknown]
  - Hypokalaemia [Unknown]
  - Headache [Not Recovered/Not Resolved]
  - Rash generalised [Unknown]
  - Rhinitis allergic [Not Recovered/Not Resolved]
  - Flatulence [Recovering/Resolving]

NARRATIVE: CASE EVENT DATE: 2017
